FAERS Safety Report 25018222 (Version 1)
Quarter: 2025Q1

REPORT INFORMATION
  Report Type: Spontaneous
  Country: GB (occurrence: GB)
  Receive Date: 20250227
  Receipt Date: 20250227
  Transmission Date: 20250409
  Serious: Yes (Hospitalization, Other)
  Sender: TORRENT PHARMA INC.
  Company Number: None

PATIENT
  Age: 76 Year
  Sex: Female

DRUGS (2)
  1. LOSARTAN [Suspect]
     Active Substance: LOSARTAN
     Indication: Hypertension
     Dosage: 50MG OD
     Route: 065
     Dates: end: 20250216
  2. QUININE [Concomitant]
     Active Substance: QUININE
     Indication: Muscle spasms
     Route: 065

REACTIONS (2)
  - Hyponatraemic seizure [Recovering/Resolving]
  - Urinary tract infection [Unknown]

NARRATIVE: CASE EVENT DATE: 20250216
